FAERS Safety Report 4815856-8 (Version None)
Quarter: 2005Q4

REPORT INFORMATION
  Report Type: 
  Country: None (occurrence: None)
  Receive Date: 20051026
  Receipt Date: 20051010
  Transmission Date: 20060501
  Serious: Yes (Other)
  Sender: FDA-Public Use
  Company Number: USA0510110683

PATIENT
  Age: 40 Year
  Sex: Male

DRUGS (2)
  1. CYMBALTA [Suspect]
     Dosage: 90 MG
     Dates: end: 20051008
  2. NSAID [Concomitant]

REACTIONS (3)
  - ALCOHOL USE [None]
  - SEROTONIN SYNDROME [None]
  - TREMOR [None]
